FAERS Safety Report 7676832-3 (Version None)
Quarter: 2011Q3

REPORT INFORMATION
  Report Type: 
  Country: None (occurrence: None)
  Receive Date: 20110811
  Receipt Date: 20110801
  Transmission Date: 20111222
  Serious: Yes (Hospitalization)
  Sender: FDA-Public Use
  Company Number: US-SANOFI-AVENTIS-2011SA049714

PATIENT
  Age: 62 Year
  Sex: Male

DRUGS (5)
  1. LOVENOX [Suspect]
     Indication: DEEP VEIN THROMBOSIS
     Route: 065
  2. INSULIN [Concomitant]
  3. HYDROXYUREA [Concomitant]
  4. LANSOPRAZOLE [Concomitant]
  5. BENAZEPRIL HYDROCHLORIDE [Concomitant]
     Indication: HYPERTENSION

REACTIONS (5)
  - SWELLING [None]
  - HAEMATOMA [None]
  - PAIN [None]
  - COMPARTMENT SYNDROME [None]
  - HAEMORRHAGE [None]
